FAERS Safety Report 5769962-4 (Version None)
Quarter: 2008Q2

REPORT INFORMATION
  Report Type: 
  Country: None (occurrence: None)
  Receive Date: 20080613
  Receipt Date: 20080414
  Transmission Date: 20081010
  Serious: No
  Sender: FDA-Public Use
  Company Number: US-ABBOTT-08P-163-0447357-00

PATIENT
  Sex: Female
  Weight: 69.008 kg

DRUGS (6)
  1. HUMIRA [Suspect]
     Indication: ANKYLOSING SPONDYLITIS
     Route: 058
     Dates: start: 20080304
  2. METHOTREXATE [Concomitant]
     Indication: ANKYLOSING SPONDYLITIS
     Route: 048
     Dates: start: 20030101
  3. PREDNISONE TAB [Concomitant]
     Indication: ANKYLOSING SPONDYLITIS
     Dosage: ON AND OFF.
     Dates: start: 20080101
  4. FOLIC ACID [Concomitant]
     Indication: VITAMIN SUPPLEMENTATION
     Route: 048
     Dates: start: 20030101
  5. ERGOCALCIFEROL [Concomitant]
     Indication: VITAMIN SUPPLEMENTATION
     Route: 048
     Dates: start: 20080101, end: 20080101
  6. MACALVIT [Concomitant]
     Indication: MINERAL SUPPLEMENTATION
     Route: 048
     Dates: start: 20080101, end: 20080101

REACTIONS (3)
  - APHTHOUS STOMATITIS [None]
  - CANDIDIASIS [None]
  - EYE INFECTION [None]
